FAERS Safety Report 5731598-9 (Version None)
Quarter: 2008Q2

REPORT INFORMATION
  Report Type: 
  Country: None (occurrence: None)
  Receive Date: 20080508
  Receipt Date: 20080505
  Transmission Date: 20081010
  Serious: Yes (Death, Life-Threatening, Hospitalization)
  Sender: FDA-Public Use
  Company Number: GB-SANOFI-SYNTHELABO-F01200700175

PATIENT
  Sex: Male

DRUGS (8)
  1. FLUOROURACIL [Suspect]
     Dosage: 4600 MG BOLUS THEN CONTINUOUS INFUSION 4000 MG
     Route: 042
     Dates: start: 20070125, end: 20070126
  2. DEXAMETHASONE [Concomitant]
     Dates: start: 20070125, end: 20070125
  3. DEXAMETHASONE [Concomitant]
     Dates: start: 20070125, end: 20070127
  4. ONDANSETRON HCL [Concomitant]
     Dates: start: 20070125, end: 20070125
  5. ONDANSETRON HCL [Concomitant]
     Dates: start: 20070124, end: 20070126
  6. OXALIPLATIN [Suspect]
     Indication: COLON CANCER
     Route: 042
     Dates: start: 20070125, end: 20070125
  7. LEUCOVORIN CALCIUM [Suspect]
     Route: 042
     Dates: start: 20070125, end: 20070126
  8. UNSPECIFIED DRUG [Concomitant]

REACTIONS (9)
  - ADHESION [None]
  - CONSTIPATION [None]
  - DEHYDRATION [None]
  - INTESTINAL PERFORATION [None]
  - MULTI-ORGAN FAILURE [None]
  - NEUTROPENIA [None]
  - PLATELET COUNT DECREASED [None]
  - SEPSIS [None]
  - WHITE BLOOD CELL COUNT DECREASED [None]
